FAERS Safety Report 16914565 (Version 2)
Quarter: 2019Q4

REPORT INFORMATION
  Report Type: Spontaneous
  Country: DE (occurrence: DE)
  Receive Date: 20191014
  Receipt Date: 20191017
  Transmission Date: 20200122
  Serious: Yes (Other)
  Sender: FDA-Public Use
  Company Number: DE-BAUSCH-BL-2019-057277

PATIENT
  Sex: Female

DRUGS (1)
  1. MYKOSERT [Suspect]
     Active Substance: SERTACONAZOLE NITRATE
     Indication: EAR INFECTION FUNGAL
     Dosage: SPRAY FOR SKIN AND ATHLETE^S FOOT SOLUTION
     Route: 001
     Dates: start: 20190911, end: 20190912

REACTIONS (5)
  - Pallor [Unknown]
  - Dizziness [Unknown]
  - Tinnitus [Unknown]
  - Panic attack [Unknown]
  - Product use in unapproved indication [Unknown]

NARRATIVE: CASE EVENT DATE: 20190911
